FAERS Safety Report 6648983-3 (Version None)
Quarter: 2010Q1

REPORT INFORMATION
  Report Type: 
  Country: None (occurrence: None)
  Receive Date: 20100324
  Receipt Date: 20100315
  Transmission Date: 20100710
  Serious: Yes (Hospitalization)
  Sender: FDA-Public Use
  Company Number: GXKR2010SA01861

PATIENT
  Age: 26 Year
  Sex: Female

DRUGS (1)
  1. PREDNISOLONE [Suspect]
     Indication: ASTHMA
     Dosage: 10 MG/DAY
     Route: 065

REACTIONS (12)
  - ADRENAL INSUFFICIENCY [None]
  - GOITRE [None]
  - HYPERCHROMIC ANAEMIA [None]
  - HYPERPARATHYROIDISM SECONDARY [None]
  - HYPERTHYROIDISM [None]
  - MUSCULAR WEAKNESS [None]
  - OSTEOPENIA [None]
  - OSTEOPOROSIS [None]
  - PATHOLOGICAL FRACTURE [None]
  - SINUS TACHYCARDIA [None]
  - TENDERNESS [None]
  - TREMOR [None]
